FAERS Safety Report 6407943-8 (Version None)
Quarter: 2009Q4

REPORT INFORMATION
  Report Type: 
  Country: None (occurrence: None)
  Receive Date: 20091015
  Receipt Date: 20090929
  Transmission Date: 20100525
  Serious: Yes (Other)
  Sender: FDA-Public Use
  Company Number: B0597105A

PATIENT
  Sex: 0

DRUGS (8)
  1. PACLITAXEL [Suspect]
     Indication: NON-SMALL CELL LUNG CANCER STAGE III
     Dosage: 175 MG/M2 / CYCLIC / INTRAVENOUS INFUSI
     Route: 042
  2. ONDANSETRON HYDROCHLORIDE [Suspect]
     Indication: NON-SMALL CELL LUNG CANCER STAGE III
     Dosage: 8 MG / CYCLIC / INTRAVENOUS
     Route: 042
  3. DEXAMETHASONE INJECTION (GENERIC) (DEXAMETHASONE) [Suspect]
     Indication: NON-SMALL CELL LUNG CANCER STAGE III
     Dosage: 20 MG / CYCLIC / INTRAVENOUS
     Route: 042
  4. CARBOPLATIN [Suspect]
     Indication: NON-SMALL CELL LUNG CANCER STAGE III
     Dosage: 5 MG/MIN / CYCLIC / INTRAVENOUS
     Route: 042
  5. GEMCITABINE INJECTION (GEMCITABINE) [Suspect]
     Indication: NON-SMALL CELL LUNG CANCER STAGE III
     Dosage: 1000 MG/M2 / CYCLIC / INTRAVENOUS
     Route: 042
  6. ALIZAPRIDE HYDROCHLORIDE INJECTION (ALIZAPRIDE HYDROCHLORIDE) [Suspect]
     Indication: NON-SMALL CELL LUNG CANCER STAGE III
     Dosage: 50 MG / CYCLIC / INTRAVENOUS
     Route: 042
  7. PROMETHAZINE INJECTION (PROMETHAZINE) [Suspect]
     Indication: NON-SMALL CELL LUNG CANCER STAGE III
     Dosage: 50 MG / CYCLIC / SUBCUTANEOUS
     Route: 058
  8. ZANTAC [Suspect]
     Indication: NON-SMALL CELL LUNG CANCER STAGE III
     Dosage: 300 MG / CYCLIC / INTRAVENOUS
     Route: 042

REACTIONS (2)
  - DRUG TOXICITY [None]
  - GASTROENTERITIS [None]
